FAERS Safety Report 5440488-0 (Version None)
Quarter: 2007Q3

REPORT INFORMATION
  Report Type: 
  Country: None (occurrence: None)
  Receive Date: 20070831
  Receipt Date: 20070822
  Transmission Date: 20080115
  Serious: Yes (Other)
  Sender: FDA-Public Use
  Company Number: CH-AMGEN-US241202

PATIENT
  Age: 64 Year
  Sex: Male

DRUGS (1)
  1. ENBREL [Suspect]
     Indication: SPONDYLITIS
     Dosage: UNKNOWN
     Route: 058
     Dates: start: 20050101

REACTIONS (2)
  - DISEASE PROGRESSION [None]
  - WHIPPLE'S DISEASE [None]
